FAERS Safety Report 20113860 (Version 3)
Quarter: 2022Q1

REPORT INFORMATION
  Report Type: Report from Study
  Country: CA (occurrence: CA)
  Receive Date: 20211125
  Receipt Date: 20220311
  Transmission Date: 20220423
  Serious: Yes (Other)
  Sender: FDA-Public Use
  Company Number: CA-UCBSA-2021053148

PATIENT
  Age: 59 Year
  Sex: Female

DRUGS (4)
  1. CERTOLIZUMAB PEGOL [Suspect]
     Active Substance: CERTOLIZUMAB PEGOL
     Indication: Rheumatoid arthritis
     Dosage: 400 MILLIGRAM, EV 2 WEEKS(QOW)
     Route: 058
     Dates: start: 20211007, end: 2021
  2. CERTOLIZUMAB PEGOL [Suspect]
     Active Substance: CERTOLIZUMAB PEGOL
     Dosage: 200 MILLIGRAM, EV 2 WEEKS(QOW)
     Route: 058
     Dates: start: 2021, end: 2021
  3. COVID-19 VACCINE [Concomitant]
     Indication: COVID-19 immunisation
  4. ABX [Concomitant]
     Indication: Pneumonia
     Dosage: FOR 7 DAYS

REACTIONS (5)
  - Pneumonia [Recovering/Resolving]
  - Infection [Unknown]
  - COVID-19 [Unknown]
  - SARS-CoV-2 test positive [Unknown]
  - COVID-19 immunisation [Unknown]

NARRATIVE: CASE EVENT DATE: 20211112
